FAERS Safety Report 6276794-X (Version None)
Quarter: 2009Q3

REPORT INFORMATION
  Report Type: 
  Country: None (occurrence: None)
  Receive Date: 20090722
  Receipt Date: 20080827
  Transmission Date: 20100115
  Serious: No
  Sender: FDA-Public Use
  Company Number: US-BRISTOL-MYERS SQUIBB COMPANY-14316715

PATIENT
  Age: 50 Year
  Sex: Female
  Weight: 111 kg

DRUGS (8)
  1. COUMADIN [Suspect]
     Dosage: 1 DOSAGEFORM= 1 TAB QD 4 DAYS PER WK AND 1/2 TAB(2.5 MG) QD 3 DAYS PER WK.
     Dates: start: 20080201
  2. COREG [Concomitant]
  3. TRICOR [Concomitant]
  4. PREVACID [Concomitant]
  5. LISINOPRIL [Concomitant]
  6. CHROMIUM PICOLINATE [Concomitant]
     Dosage: 4 DOSE
  7. L-CARNITINE [Concomitant]
     Dosage: 4 DOSE
  8. ANTIBIOTIC [Concomitant]
     Indication: SINUSITIS

REACTIONS (1)
  - INTERNATIONAL NORMALISED RATIO INCREASED [None]
